FAERS Safety Report 6584324-8 (Version None)
Quarter: 2010Q1

REPORT INFORMATION
  Report Type: 
  Country: None (occurrence: None)
  Receive Date: 20100216
  Receipt Date: 20100205
  Transmission Date: 20100710
  Serious: No
  Sender: FDA-Public Use
  Company Number: US-ABBOTT-10P-163-0624480-00

PATIENT
  Sex: Male
  Weight: 118.04 kg

DRUGS (5)
  1. SIMCOR [Suspect]
     Indication: CORONARY ARTERY DISEASE
     Dosage: 500/20MG AT BEDTIME
     Dates: start: 20100203
  2. ALLOPURINOL [Concomitant]
     Indication: GOUT
  3. COLCHICINE [Concomitant]
     Indication: GOUT
  4. METFORMIN HCL [Concomitant]
     Indication: DRUG USE FOR UNKNOWN INDICATION
  5. ASPIRIN [Concomitant]
     Indication: DRUG USE FOR UNKNOWN INDICATION

REACTIONS (1)
  - BLOOD GLUCOSE INCREASED [None]
